FAERS Safety Report 6826793-1 (Version None)
Quarter: 2010Q3

REPORT INFORMATION
  Report Type: 
  Country: None (occurrence: None)
  Receive Date: 20100709
  Receipt Date: 20100629
  Transmission Date: 20110219
  Serious: Yes (Other)
  Sender: FDA-Public Use
  Company Number: US-ROCHE-691747

PATIENT
  Sex: Male
  Weight: 83.9 kg

DRUGS (6)
  1. ACCUTANE [Suspect]
     Indication: ACNE
     Route: 065
     Dates: start: 20050302, end: 20050508
  2. SOTRET [Suspect]
     Indication: ACNE
     Dosage: STRENGTH: 20 MG AND 40 MG
     Route: 048
     Dates: start: 20050102, end: 20050302
  3. SOTRET [Suspect]
     Route: 048
     Dates: start: 20050516, end: 20050616
  4. BENZOYL PEROXIDE WASH [Concomitant]
     Indication: ACNE
  5. BENZACLIN [Concomitant]
     Indication: ACNE
  6. DIFFERIN [Concomitant]
     Indication: ACNE

REACTIONS (5)
  - ANAL FISSURE [None]
  - ANKYLOSING SPONDYLITIS [None]
  - COLITIS [None]
  - INFLAMMATORY BOWEL DISEASE [None]
  - SACROILIITIS [None]
